FAERS Safety Report 5007433-3 (Version None)
Quarter: 2006Q2

REPORT INFORMATION
  Report Type: 
  Country: None (occurrence: None)
  Receive Date: 20060519
  Receipt Date: 20060519
  Transmission Date: 20061013
  Serious: Yes (Hospitalization)
  Sender: FDA-Public Use
  Company Number: None

PATIENT
  Age: 55 Year
  Sex: Male

DRUGS (1)
  1. ARIXTRA [Suspect]
     Indication: DEEP VEIN THROMBOSIS
     Dosage: 7.5 MG QDAY SQ
     Route: 058
     Dates: start: 20060317, end: 20060323

REACTIONS (2)
  - HAEMORRHAGE [None]
  - INTUBATION COMPLICATION [None]
